FAERS Safety Report 7489036-4 (Version None)
Quarter: 2011Q1

REPORT INFORMATION
  Report Type: 
  Country: None (occurrence: None)
  Receive Date: 20110317
  Receipt Date: 20101207
  Transmission Date: 20110831
  Serious: Yes (Other)
  Sender: FDA-Public Use
  Company Number: 2010028583

PATIENT
  Age: 26 Year
  Sex: Male
  Weight: 77.1 kg

DRUGS (1)
  1. ROGAINE [Suspect]
     Indication: ALOPECIA
     Dosage: AS DIRECTED TWICE A DAY (2 IN 1 D), TOPICAL
     Route: 061
     Dates: start: 20100901, end: 20101201

REACTIONS (1)
  - WEIGHT INCREASED [None]
